FAERS Safety Report 24883690 (Version 1)
Quarter: 2025Q1

REPORT INFORMATION
  Report Type: Spontaneous
  Country: US (occurrence: None)
  Receive Date: 20250124
  Receipt Date: 20250124
  Transmission Date: 20250409
  Serious: No
  Sender: FDA-CTU
  Company Number: None

PATIENT
  Sex: Male

DRUGS (2)
  1. UDENYCA [Suspect]
     Active Substance: PEGFILGRASTIM-CBQV
     Indication: Agranulocytosis
     Route: 058
     Dates: start: 202409
  2. UDENYCA [Suspect]
     Active Substance: PEGFILGRASTIM-CBQV
     Indication: Soft tissue sarcoma

REACTIONS (3)
  - Headache [None]
  - Eye pain [None]
  - Thrombosis [None]
